FAERS Safety Report 24781033 (Version 1)
Quarter: 2024Q4

REPORT INFORMATION
  Report Type: Spontaneous
  Country: US (occurrence: US)
  Receive Date: 20241227
  Receipt Date: 20241227
  Transmission Date: 20250115
  Serious: No
  Sender: BIOVITRUM
  Company Number: US-BIOVITRUM-2024-US-016372

PATIENT
  Age: 72 Year
  Sex: Male

DRUGS (1)
  1. VONJO [Suspect]
     Active Substance: PACRITINIB
     Indication: Myelofibrosis
     Dosage: TWICE DAILY
     Route: 048

REACTIONS (3)
  - Laboratory test abnormal [Unknown]
  - White blood cell count decreased [Unknown]
  - Off label use [Not Recovered/Not Resolved]
